FAERS Safety Report 7541138-X (Version None)
Quarter: 2011Q2

REPORT INFORMATION
  Report Type: 
  Country: None (occurrence: None)
  Receive Date: 20110610
  Receipt Date: 20110531
  Transmission Date: 20111010
  Serious: Yes (Hospitalization)
  Sender: FDA-Public Use
  Company Number: US-ELI_LILLY_AND_COMPANY-US201106000663

PATIENT
  Age: 68 Year
  Sex: Male

DRUGS (2)
  1. ADCIRCA [Suspect]
  2. TREPROSTINIL [Concomitant]
     Indication: PULMONARY ARTERIAL HYPERTENSION
     Dosage: UNK
     Route: 055
     Dates: start: 20110117

REACTIONS (1)
  - PNEUMONIA [None]
